FAERS Safety Report 4644124-2 (Version None)
Quarter: 2005Q2

REPORT INFORMATION
  Report Type: 
  Country: None (occurrence: None)
  Receive Date: 20050425
  Receipt Date: 20050418
  Transmission Date: 20051028
  Serious: Yes (Other)
  Sender: FDA-Public Use
  Company Number: US-GLAXOSMITHKLINE-A0554874A

PATIENT
  Age: 52 Year
  Sex: Female

DRUGS (1)
  1. PAXIL CR [Suspect]
     Indication: MENOPAUSAL SYMPTOMS
     Route: 048

REACTIONS (9)
  - CONVERSION DISORDER [None]
  - CRYING [None]
  - EMOTIONAL DISORDER [None]
  - FEMALE SEXUAL DYSFUNCTION [None]
  - HOT FLUSH [None]
  - NIGHT SWEATS [None]
  - SUICIDAL IDEATION [None]
  - WEIGHT INCREASED [None]
  - WEIGHT LOSS POOR [None]
